FAERS Safety Report 5669796-5 (Version None)
Quarter: 2008Q1

REPORT INFORMATION
  Report Type: 
  Country: None (occurrence: None)
  Receive Date: 20080314
  Receipt Date: 20080314
  Transmission Date: 20080703
  Serious: Yes (Life-Threatening, Hospitalization)
  Sender: FDA-Public Use
  Company Number: None

PATIENT
  Age: 5 Year
  Sex: Male
  Weight: 41 kg

DRUGS (2)
  1. PREDNISOLONE SODIUM PHOSPHATE [Suspect]
     Indication: JUVENILE ARTHRITIS
     Dosage: 1.2 ML/3.8 MG DAILY PO
     Route: 048
     Dates: start: 20080108
  2. PREDNISOLONE SODIUM PHOSPHATE [Suspect]
     Dosage: 6.2 ML/18.6 MG DAILY; TAPER QWK; PO
     Route: 048
     Dates: start: 20071204

REACTIONS (5)
  - COUGH [None]
  - HALLUCINATIONS, MIXED [None]
  - NASOPHARYNGITIS [None]
  - PHARYNGEAL ERYTHEMA [None]
  - PSYCHOTIC DISORDER [None]
